FAERS Safety Report 7678048-3 (Version None)
Quarter: 2011Q3

REPORT INFORMATION
  Report Type: 
  Country: None (occurrence: None)
  Receive Date: 20110811
  Receipt Date: 20110802
  Transmission Date: 20111222
  Serious: Yes (Death)
  Sender: FDA-Public Use
  Company Number: US-ACTELION-A-US2011-50491

PATIENT

DRUGS (2)
  1. TADALAFIL [Concomitant]
  2. TRACLEER [Suspect]
     Indication: PULMONARY ARTERIAL HYPERTENSION
     Dosage: UNK
     Route: 048
     Dates: start: 20090605, end: 20110614

REACTIONS (4)
  - PULMONARY ARTERIAL HYPERTENSION [None]
  - INTERSTITIAL LUNG DISEASE [None]
  - SCLERODERMA [None]
  - CONDITION AGGRAVATED [None]
